FAERS Safety Report 5591830-1 (Version None)
Quarter: 2008Q1

REPORT INFORMATION
  Report Type: 
  Country: None (occurrence: None)
  Receive Date: 20080115
  Receipt Date: 20080103
  Transmission Date: 20080703
  Serious: Yes (Other)
  Sender: FDA-Public Use
  Company Number: B0482702A

PATIENT
  Sex: Male

DRUGS (2)
  1. PAROXETINE [Suspect]
     Indication: DRUG USE FOR UNKNOWN INDICATION
     Dates: start: 19990427
  2. CIPRAMIL [Concomitant]
     Route: 065
     Dates: start: 19990101

REACTIONS (6)
  - AMNESIA [None]
  - ANXIETY [None]
  - DEPRESSION [None]
  - DRUG WITHDRAWAL SYNDROME [None]
  - FATIGUE [None]
  - SUICIDAL IDEATION [None]
